FAERS Safety Report 9552283 (Version 2)
Quarter: 2014Q4

REPORT INFORMATION
  Report Type: Spontaneous
  Country: US (occurrence: US)
  Receive Date: 20130925
  Receipt Date: 20141028
  Transmission Date: 20150529
  Serious: Yes (Other)
  Sender: FDA-Public Use
  Company Number: US-AMGEN-USASP2013066119

PATIENT
  Age: 89 Year
  Sex: Female

DRUGS (2)
  1. MULTIVITAMIN                       /00097801/ [Concomitant]
     Active Substance: VITAMINS
  2. PROLIA [Suspect]
     Active Substance: DENOSUMAB
     Indication: OSTEOPOROSIS POSTMENOPAUSAL
     Dosage: UNK UNK, Q6MO
     Route: 065
     Dates: start: 2011

REACTIONS (5)
  - Balance disorder [Unknown]
  - Hypertension [Unknown]
  - Hyperparathyroidism [Unknown]
  - Arthralgia [Unknown]
  - Toothache [Unknown]

NARRATIVE: CASE EVENT DATE: 2014
